FAERS Safety Report 25718610 (Version 1)
Quarter: 2025Q3

REPORT INFORMATION
  Report Type: Spontaneous
  Country: US (occurrence: US)
  Receive Date: 20250823
  Receipt Date: 20250823
  Transmission Date: 20251020
  Serious: Yes (Death, Life-Threatening, Other)
  Sender: AMGEN
  Company Number: US-AMGEN-USASP2025160584

PATIENT

DRUGS (2)
  1. INFLIXIMAB [Suspect]
     Active Substance: INFLIXIMAB
     Indication: Immune-mediated adverse reaction
     Route: 065
  2. PREDNISONE [Concomitant]
     Active Substance: PREDNISONE
     Indication: Immune-mediated adverse reaction
     Route: 065

REACTIONS (5)
  - Infection [Fatal]
  - Opportunistic infection [Unknown]
  - Epstein-Barr viraemia [Unknown]
  - Cytomegalovirus infection reactivation [Unknown]
  - Herpes simplex [Unknown]
